FAERS Safety Report 5331418-0 (Version None)
Quarter: 2007Q2

REPORT INFORMATION
  Report Type: 
  Country: None (occurrence: None)
  Receive Date: 20070516
  Receipt Date: 20070501
  Transmission Date: 20071010
  Serious: Yes (Other)
  Sender: FDA-Public Use
  Company Number: 2007S1003737

PATIENT
  Age: 50 Year
  Sex: Female

DRUGS (12)
  1. FENTANYL TRANSDERMAL SYSTEM [Suspect]
     Indication: SCIATICA
     Dosage: 100 UG/HR; X1; TRANSDERMAL
     Route: 062
     Dates: start: 20070424, end: 20070425
  2. CELECOXIB [Concomitant]
  3. ESCITALOPRAM OXALATE [Concomitant]
  4. FUROSEMIDE SODIUM [Concomitant]
  5. BUTENAFINE HYDROCHLORIDE [Concomitant]
  6. ATORVASTATIN CALCIUM [Concomitant]
  7. POTASSIUM CHLORIDE [Concomitant]
  8. LEVOTHYROXINE SODIUM [Concomitant]
  9. ESTRATEST H.S. [Concomitant]
  10. GABAPENTIN [Concomitant]
  11. LORAZEPAM [Concomitant]
  12. SENNA ALESANDRINA [Concomitant]

REACTIONS (4)
  - DRUG EFFECT INCREASED [None]
  - INADEQUATE ANALGESIA [None]
  - MIGRAINE [None]
  - PHARMACEUTICAL PRODUCT COMPLAINT [None]
